FAERS Safety Report 6895381-3 (Version None)
Quarter: 2010Q3

REPORT INFORMATION
  Report Type: 
  Country: None (occurrence: None)
  Receive Date: 20100802
  Receipt Date: 20100721
  Transmission Date: 20110219
  Serious: Yes (Other)
  Sender: FDA-Public Use
  Company Number: AU-PFIZER INC-2010091395

PATIENT
  Age: 25 Year
  Sex: Male

DRUGS (4)
  1. XANAX [Suspect]
     Dosage: 4-6 TABLETS EACH DAY
  2. PRISTIQ [Suspect]
     Dosage: UNK
  3. VALIUM [Suspect]
     Dosage: UNK
  4. LARGACTIL [Suspect]
     Dosage: UNK

REACTIONS (3)
  - AGITATION [None]
  - ANXIETY [None]
  - SELF-INJURIOUS IDEATION [None]
